FAERS Safety Report 20607447 (Version 5)
Quarter: 2023Q1

REPORT INFORMATION
  Report Type: Report from Study
  Country: CA (occurrence: CA)
  Receive Date: 20220317
  Receipt Date: 20230103
  Transmission Date: 20230418
  Serious: No
  Sender: FDA-Public Use
  Company Number: CA-JNJFOC-20220250851

PATIENT
  Age: 48 Year
  Sex: Female

DRUGS (2)
  1. REMICADE [Suspect]
     Active Substance: INFLIXIMAB
     Indication: Rheumatoid arthritis
     Route: 042
  2. REMICADE [Suspect]
     Active Substance: INFLIXIMAB
     Route: 042

REACTIONS (5)
  - Somnolence [Unknown]
  - Vestibular migraine [Recovering/Resolving]
  - Neoplasm [Unknown]
  - Tumour pain [Unknown]
  - Gout [Recovering/Resolving]
